FAERS Safety Report 9523609 (Version 1)
Quarter: 2013Q3

REPORT INFORMATION
  Report Type: Spontaneous
  Country: US (occurrence: US)
  Receive Date: 20130913
  Receipt Date: 20130913
  Transmission Date: 20140515
  Serious: Yes (Hospitalization)
  Sender: FDA-Public Use
  Company Number: US-B.I. PHARMACEUTICALS,INC./RIDGEFIELD-2013-BI-28280BP

PATIENT
  Age: 47 Year
  Sex: Female
  Weight: 93 kg

DRUGS (8)
  1. COMBIVENT [Suspect]
     Indication: CHRONIC OBSTRUCTIVE PULMONARY DISEASE
     Dosage: DOSE PER APPLICATION: 18 MCG / 103 MCG; DAILY DOSE: 108MCG/600MCG
     Route: 055
     Dates: start: 2004, end: 20130404
  2. ESTRADIOL [Concomitant]
     Indication: HYSTERECTOMY
     Dosage: 1 MG
     Route: 048
     Dates: start: 2008
  3. SINGULAIR [Concomitant]
     Indication: ASTHMA
     Dosage: 10 MG
     Route: 048
     Dates: start: 2005
  4. TRAMADOL [Concomitant]
     Indication: PAIN
     Dosage: 150 MG
     Route: 048
     Dates: start: 2005
  5. GABAPENTIN [Concomitant]
     Indication: FIBROMYALGIA
     Dosage: 1200 MG
     Route: 048
     Dates: start: 2004
  6. FLEXERIL [Concomitant]
     Indication: MUSCLE RELAXANT THERAPY
     Dosage: 20 MG
     Route: 048
     Dates: start: 2004, end: 2012
  7. LEVOTHYROXINE [Concomitant]
     Indication: HYPOTHYROIDISM
     Dosage: 100 MCG
     Route: 048
     Dates: start: 2004
  8. ADVAIR [Concomitant]
     Indication: LUNG DISORDER
     Dosage: DOSE PER APPLICATION: 250/50; DAILY DOSE: 500MCG/100MCG
     Route: 055
     Dates: start: 2008

REACTIONS (1)
  - Pneumonia [Recovered/Resolved]
